FAERS Safety Report 17042724 (Version 3)
Quarter: 2021Q4

REPORT INFORMATION
  Report Type: Report from Study
  Country: DE (occurrence: DE)
  Receive Date: 20191118
  Receipt Date: 20211125
  Transmission Date: 20220303
  Serious: Yes (Other)
  Sender: FDA-Public Use
  Company Number: None

PATIENT
  Age: 45 Year
  Sex: Female

DRUGS (6)
  1. GILENYA [Suspect]
     Active Substance: FINGOLIMOD HYDROCHLORIDE
     Indication: Multiple sclerosis
     Dosage: 0.5 MG, QD
     Route: 048
     Dates: start: 20160218
  2. AMITRIPTYLINE [Concomitant]
     Active Substance: AMITRIPTYLINE
     Indication: Depression
     Dosage: 25 UNK
     Route: 065
     Dates: start: 20070124
  3. DALFAMPRIDINE [Concomitant]
     Active Substance: DALFAMPRIDINE
     Indication: Multiple sclerosis
     Dosage: 10 UNK
     Route: 065
     Dates: start: 20111024
  4. METOPROLOL [Concomitant]
     Active Substance: METOPROLOL
     Indication: Tachycardia
     Dosage: 100 MG
     Route: 065
  5. SOLVEX [Concomitant]
     Indication: Depression
     Dosage: 4 MG
     Route: 065
     Dates: start: 20060613
  6. SOLVEX [Concomitant]
     Dosage: 4 MG
     Route: 065
     Dates: start: 20160701

REACTIONS (4)
  - Lymphopenia [Recovered/Resolved]
  - Lymphopenia [Recovered/Resolved]
  - Lymphopenia [Recovering/Resolving]
  - Fatigue [Recovered/Resolved]

NARRATIVE: CASE EVENT DATE: 20161117
